FAERS Safety Report 20110259 (Version 1)
Quarter: 2021Q4

REPORT INFORMATION
  Report Type: Spontaneous
  Country: US (occurrence: US)
  Receive Date: 20211124
  Receipt Date: 20211124
  Transmission Date: 20220303
  Serious: No
  Sender: FDA-Public Use
  Company Number: US-009507513-2111USA004197

PATIENT
  Age: 53 Year
  Sex: Female

DRUGS (4)
  1. TEMODAR [Suspect]
     Active Substance: TEMOZOLOMIDE
     Indication: Neuroendocrine tumour
     Dosage: UNK
     Route: 048
  2. TEMODAR [Suspect]
     Active Substance: TEMOZOLOMIDE
     Indication: Metastases to liver
  3. CAPECITABINE [Concomitant]
     Active Substance: CAPECITABINE
     Indication: Neuroendocrine tumour
     Dosage: UNK
  4. CAPECITABINE [Concomitant]
     Active Substance: CAPECITABINE
     Indication: Metastases to liver

REACTIONS (1)
  - Product use in unapproved indication [Unknown]
